FAERS Safety Report 9044629 (Version 3)
Quarter: 2013Q1

REPORT INFORMATION
  Report Type: Spontaneous
  Country: US (occurrence: US)
  Receive Date: 20130130
  Receipt Date: 20130210
  Transmission Date: 20140127
  Serious: No
  Sender: FDA-Public Use
  Company Number: US-TEVA-383151USA

PATIENT
  Sex: Female
  Weight: 108.96 kg

DRUGS (3)
  1. NUVIGIL [Suspect]
     Indication: NARCOLEPSY
     Dosage: 150 MILLIGRAM DAILY;
     Route: 048
     Dates: start: 201211
  2. NUVIGIL [Suspect]
     Indication: SLEEP APNOEA SYNDROME
  3. AMBIEN [Concomitant]
     Indication: INSOMNIA
     Route: 048
     Dates: start: 201201

REACTIONS (2)
  - Headache [Unknown]
  - Drug ineffective [Not Recovered/Not Resolved]
